FAERS Safety Report 19102124 (Version 1)
Quarter: 2021Q2

REPORT INFORMATION
  Report Type: Spontaneous
  Country: JP (occurrence: JP)
  Receive Date: 20210407
  Receipt Date: 20210407
  Transmission Date: 20210717
  Serious: Yes (Other)
  Sender: FDA-Public Use
  Company Number: JP-TAKEDA-2021TUS020106

PATIENT
  Age: 13 Year
  Sex: Male

DRUGS (4)
  1. 476 (MESALAZINE/MESALAMINE) [Suspect]
     Active Substance: MESALAMINE
     Dosage: 100 MILLIGRAM/KILOGRAM, QD
     Route: 048
  2. INFLIXIMAB [Concomitant]
     Active Substance: INFLIXIMAB
     Dosage: 5 MILLIGRAM PER DOSE
     Route: 065
  3. 476 (MESALAZINE/MESALAMINE) [Suspect]
     Active Substance: MESALAMINE
     Indication: COLITIS ULCERATIVE
     Dosage: 75 MILLIGRAM/KILOGRAM, QD
     Route: 048
  4. PREDNISOLONE. [Concomitant]
     Active Substance: PREDNISOLONE
     Dosage: 1 MILLIGRAM/KILOGRAM
     Route: 065

REACTIONS (2)
  - Therapeutic response decreased [Recovered/Resolved]
  - Nephritis [Recovered/Resolved]
